FAERS Safety Report 8725127 (Version 4)
Quarter: 2013Q1

REPORT INFORMATION
  Report Type: Report from Study
  Country: DE (occurrence: DE)
  Receive Date: 20120815
  Receipt Date: 20130301
  Transmission Date: 20140127
  Serious: Yes (Death, Hospitalization)
  Sender: FDA-Public Use
  Company Number: DE-GLAXOSMITHKLINE-B0802828C

PATIENT
  Age: 62 Year
  Sex: Male
  Weight: 48 kg

DRUGS (2)
  1. VOTRIENT [Suspect]
     Indication: SARCOMA
     Dosage: 400MG PER DAY
     Route: 048
     Dates: start: 20120411, end: 20120813
  2. GEMZAR [Suspect]
     Indication: SARCOMA
     Dosage: 1200MGM2 CYCLIC
     Route: 042
     Dates: start: 20120411, end: 20120725

REACTIONS (1)
  - General physical health deterioration [Fatal]
